FAERS Safety Report 6646179-2 (Version None)
Quarter: 2010Q1

REPORT INFORMATION
  Report Type: 
  Country: None (occurrence: None)
  Receive Date: 20100323
  Receipt Date: 20100311
  Transmission Date: 20100710
  Serious: Yes (Hospitalization)
  Sender: FDA-Public Use
  Company Number: CA-PFIZER INC-2010027983

PATIENT
  Age: 57 Year
  Sex: Male
  Weight: 72 kg

DRUGS (12)
  1. SUTENT [Suspect]
     Indication: COLORECTAL CANCER
     Dosage: 50 MG, 1X/DAY
     Route: 048
     Dates: start: 20100216, end: 20100301
  2. XELODA [Suspect]
     Indication: COLORECTAL CANCER
     Dosage: 1000 MG/M2, 2X/DAY
     Route: 048
     Dates: start: 20100216, end: 20100301
  3. ZOPICLONE [Concomitant]
     Indication: INSOMNIA
     Dosage: UNK
     Route: 048
     Dates: start: 20090101
  4. ATACAND [Concomitant]
     Indication: HYPERTENSION
     Dosage: UNK
     Route: 048
     Dates: start: 20030101
  5. NASONEX [Concomitant]
     Indication: NASAL DRYNESS
     Dosage: UNK
     Route: 045
     Dates: start: 20100108
  6. CODEINE SYRUP [Concomitant]
     Indication: COUGH
     Dosage: UNK
     Route: 048
     Dates: start: 20100108, end: 20100116
  7. COPHYLAC [Concomitant]
     Indication: COUGH
     Dosage: UNK
     Route: 048
     Dates: start: 20100209, end: 20100223
  8. MAGIC MOUTHWASH [Concomitant]
     Indication: MUCOSAL INFLAMMATION
     Dosage: UNK
     Route: 048
     Dates: start: 20100209, end: 20100301
  9. STEMETIL ^AVENTIS PHARMA^ [Concomitant]
     Indication: PROPHYLAXIS OF NAUSEA AND VOMITING
     Dosage: UNK
     Route: 048
     Dates: start: 20100224
  10. FLOVENT [Concomitant]
     Indication: COUGH
     Dosage: UNK
     Route: 055
     Dates: start: 20100224
  11. VENTOLIN [Concomitant]
     Indication: COUGH
     Dosage: UNK
     Route: 055
     Dates: start: 20100224
  12. TYLENOL-500 [Concomitant]
     Indication: ABDOMINAL PAIN
     Dosage: UNK
     Route: 048
     Dates: start: 20100301

REACTIONS (2)
  - BILE DUCT OBSTRUCTION [None]
  - CONFUSIONAL STATE [None]
